FAERS Safety Report 4732650-7 (Version None)
Quarter: 2005Q3

REPORT INFORMATION
  Report Type: 
  Country: None (occurrence: None)
  Receive Date: 20050802
  Receipt Date: 20050802
  Transmission Date: 20060218
  Serious: Yes (Hospitalization)
  Sender: FDA-Public Use
  Company Number: None

PATIENT
  Sex: Male
  Weight: 96.5 kg

DRUGS (12)
  1. TOBRAMYCIN [Suspect]
     Indication: CELLULITIS
     Dosage: 600 MG Q 36 HOURS IV
     Route: 042
     Dates: start: 20050224, end: 20050228
  2. ALLOPURINOL [Concomitant]
  3. PHOSLO [Concomitant]
  4. FINASTERIDE [Concomitant]
  5. FUROSEMIDE [Concomitant]
  6. HYDRALAZINE [Concomitant]
  7. HUMULIN 70/30 [Concomitant]
  8. METOPROLOL SUCC [Concomitant]
  9. MORPHINE [Concomitant]
  10. OMEPRAZOLE [Concomitant]
  11. SIMVASTATIN [Concomitant]
  12. TERAZOSIN HCL [Concomitant]

REACTIONS (4)
  - BLOOD POTASSIUM INCREASED [None]
  - DIALYSIS [None]
  - RENAL FAILURE ACUTE [None]
  - SOMNOLENCE [None]
